FAERS Safety Report 25973877 (Version 1)
Quarter: 2025Q4

REPORT INFORMATION
  Report Type: Spontaneous
  Country: US (occurrence: None)
  Receive Date: 20251028
  Receipt Date: 20251028
  Transmission Date: 20260117
  Serious: No
  Sender: FDA-CTU
  Company Number: None

PATIENT
  Sex: Female

DRUGS (1)
  1. IBRANCE [Suspect]
     Active Substance: PALBOCICLIB
     Indication: Breast cancer female
     Dosage: 100 MG DAILY ORAL
     Route: 048
     Dates: start: 20250214

REACTIONS (4)
  - Fall [None]
  - Shoulder fracture [None]
  - Myocardial infarction [None]
  - Product use issue [None]
